FAERS Safety Report 6907418-3 (Version None)
Quarter: 2010Q3

REPORT INFORMATION
  Report Type: 
  Country: None (occurrence: None)
  Receive Date: 20100716
  Receipt Date: 20091105
  Transmission Date: 20110219
  Serious: Yes (Hospitalization)
  Sender: FDA-Public Use
  Company Number: US-WYE-H12018509

PATIENT
  Age: 76 Year
  Sex: Male
  Weight: 95.9 kg

DRUGS (14)
  1. MYLOTARG [Suspect]
     Indication: ACUTE MYELOID LEUKAEMIA
     Dosage: 19.4 MG 1X PER 1 DAY, INTRAVENOUS
     Route: 042
     Dates: start: 20091024, end: 20091024
  2. ATENOLOL [Concomitant]
  3. ENALAPRIL MALEATE [Concomitant]
  4. HYDROCHLOROTHIAZIDE [Concomitant]
  5. AMLODIPINE [Concomitant]
  6. TAMSULOSIN HCL [Concomitant]
  7. ALLOPURINOL [Concomitant]
  8. VITAMIN D [Concomitant]
  9. MULTIVITAMINS (ASCORBIC ACID/ERGOCALCIFEROL/FOLIC ACID/NICOTINAMIDE/PA [Concomitant]
  10. SIMETHICONE (DIMETICONE, ACTIVATED) [Concomitant]
  11. PROCHLORPERAZINE MALEATE [Concomitant]
  12. SENNA (SENNA) [Concomitant]
  13. LEVOFLOXACIN [Concomitant]
  14. METHYLPREDNISOLONE [Concomitant]

REACTIONS (2)
  - PLATELET COUNT DECREASED [None]
  - WHITE BLOOD CELL COUNT DECREASED [None]
